FAERS Safety Report 6417341-9 (Version None)
Quarter: 2009Q4

REPORT INFORMATION
  Report Type: 
  Country: None (occurrence: None)
  Receive Date: 20091028
  Receipt Date: 20091015
  Transmission Date: 20100525
  Serious: Yes (Hospitalization, Other)
  Sender: FDA-Public Use
  Company Number: US-PFIZER INC-2009284533

PATIENT

DRUGS (1)
  1. CHANTIX [Suspect]

REACTIONS (1)
  - GASTROINTESTINAL SURGERY [None]
